FAERS Safety Report 9437978 (Version 1)
Quarter: 2013Q3

REPORT INFORMATION
  Report Type: Spontaneous
  Country: US (occurrence: US)
  Receive Date: 20130802
  Receipt Date: 20130802
  Transmission Date: 20140515
  Serious: No
  Sender: FDA-Public Use
  Company Number: US-BRISTOL-MYERS SQUIBB COMPANY-16667354

PATIENT
  Age: 78 Year
  Sex: Female
  Weight: 86.17 kg

DRUGS (1)
  1. COUMADIN [Suspect]
     Indication: PULMONARY THROMBOSIS
     Dosage: PRESCRIPTION#: 011081
     Dates: start: 2007

REACTIONS (2)
  - Dyspnoea [Unknown]
  - Dizziness [Not Recovered/Not Resolved]
